FAERS Safety Report 17596607 (Version 5)
Quarter: 2020Q2

REPORT INFORMATION
  Report Type: Report from Study
  Country: US (occurrence: US)
  Receive Date: 20200330
  Receipt Date: 20200528
  Transmission Date: 20200713
  Serious: Yes (Other)
  Sender: FDA-Public Use
  Company Number: NVSC2020US079314

PATIENT
  Age: 73 Year
  Sex: Male

DRUGS (3)
  1. OTEZLA [Concomitant]
     Active Substance: APREMILAST
     Indication: PRODUCT USED FOR UNKNOWN INDICATION
     Dosage: UNK
     Route: 065
  2. COSENTYX [Suspect]
     Active Substance: SECUKINUMAB
     Indication: PSORIATIC ARTHROPATHY
     Dosage: 300 MG, UNKNOWN
     Route: 058
     Dates: start: 20200411
  3. COSENTYX [Suspect]
     Active Substance: SECUKINUMAB
     Indication: PSORIASIS
     Dosage: 300 MG, UNKNOWN ( BENEATH THE SKIN, USUALLY VIA INJECTION)
     Route: 058
     Dates: start: 20200215

REACTIONS (5)
  - Tendon disorder [Unknown]
  - Injection site pain [Unknown]
  - Musculoskeletal stiffness [Unknown]
  - Therapeutic product effect incomplete [Unknown]
  - Pain [Unknown]

NARRATIVE: CASE EVENT DATE: 20200411
